FAERS Safety Report 9525351 (Version 1)
Quarter: 2013Q1

REPORT INFORMATION
  Report Type: Spontaneous
  Country: US (occurrence: None)
  Receive Date: 20130314
  Receipt Date: 20130314
  Transmission Date: 20140127
  Serious: No
  Sender: FDA-Public Use
  Company Number: 1212USA004320

PATIENT
  Age: 61 Year
  Sex: Female

DRUGS (4)
  1. VICTRELIS (BOCEPREVIR) CAPSULE [Suspect]
     Indication: HEPATITIS C
     Route: 048
     Dates: start: 201210
  2. PEGASYS (PEGINTERFERON ALFA-2A) [Suspect]
  3. RIBASPHERE (RIBAVIRIN) [Suspect]
  4. VITAMIN D (VITAMIN D) [Concomitant]

REACTIONS (3)
  - Haematocrit decreased [None]
  - Haemoglobin decreased [None]
  - Anaemia [None]
